FAERS Safety Report 23623450 (Version 1)
Quarter: 2024Q1

REPORT INFORMATION
  Report Type: Spontaneous
  Country: US (occurrence: None)
  Receive Date: 20240312
  Receipt Date: 20240312
  Transmission Date: 20240410
  Serious: Yes (Other)
  Sender: FDA-Public Use
  Company Number: 2024A060192

PATIENT
  Sex: Female

DRUGS (1)
  1. LYNPARZA [Suspect]
     Active Substance: OLAPARIB
     Indication: Ovarian cancer
     Dosage: 1 PILL (150 MG)1.0DF UNKNOWN
     Route: 048

REACTIONS (3)
  - Colitis ulcerative [Unknown]
  - Pruritus [Unknown]
  - Gastrointestinal disorder [Unknown]
